FAERS Safety Report 17171730 (Version 1)
Quarter: 2019Q4

REPORT INFORMATION
  Report Type: Spontaneous
  Country: US (occurrence: US)
  Receive Date: 20191126
  Receipt Date: 20191126
  Transmission Date: 20200122
  Serious: Yes (Hospitalization)
  Sender: FDA-Public Use
  Company Number: None

PATIENT
  Age: 50 Year
  Sex: Female

DRUGS (8)
  1. TACROLIMUS 1MG CAP (16) [Concomitant]
     Route: 048
  2. LISINOPRIL. [Concomitant]
     Active Substance: LISINOPRIL
  3. PREDNISONE. [Concomitant]
     Active Substance: PREDNISONE
  4. MYCOPHENOLIC [Concomitant]
     Active Substance: MYCOPHENOLIC ACID
  5. TACROLIMUS 1MG CAP (44) [Suspect]
     Active Substance: TACROLIMUS
     Indication: PRODUCT USED FOR UNKNOWN INDICATION
     Dosage: ?          OTHER DOSE:CAP;?
     Route: 048
     Dates: start: 20180530
  6. OMEPRAZOLE. [Concomitant]
     Active Substance: OMEPRAZOLE
  7. ITRACONAZOLE. [Concomitant]
     Active Substance: ITRACONAZOLE
  8. LUMIGAN [Concomitant]
     Active Substance: BIMATOPROST

REACTIONS (1)
  - Rotator cuff repair [None]

NARRATIVE: CASE EVENT DATE: 20191108
